FAERS Safety Report 5803446-X (Version None)
Quarter: 2008Q2

REPORT INFORMATION
  Report Type: 
  Country: None (occurrence: None)
  Receive Date: 20080627
  Receipt Date: 20080327
  Transmission Date: 20081010
  Serious: Yes (Other)
  Sender: FDA-Public Use
  Company Number: 46730

PATIENT
  Age: 1 Year
  Sex: Female
  Weight: 10 kg

DRUGS (9)
  1. VECURONIUM BROMIDE [Suspect]
     Indication: SEDATIVE THERAPY
     Dosage: CONTINOUS IV INFUSION
     Route: 042
  2. CEFTAZIDIME [Concomitant]
  3. POTASSIUM CHLORIDE [Concomitant]
  4. TPN [Concomitant]
  5. VANCOMYCIN HCL [Concomitant]
  6. DOPAMINE HCL [Concomitant]
  7. FENTANYL-25 [Concomitant]
  8. HEPARIN [Concomitant]
  9. VERSED [Concomitant]

REACTIONS (1)
  - DRUG INEFFECTIVE [None]
